FAERS Safety Report 5808494-1 (Version None)
Quarter: 2008Q3

REPORT INFORMATION
  Report Type: 
  Country: None (occurrence: None)
  Receive Date: 20080714
  Receipt Date: 20080705
  Transmission Date: 20090109
  Serious: Yes (Hospitalization)
  Sender: FDA-Public Use
  Company Number: US-AMGEN-US293180

PATIENT
  Sex: Male
  Weight: 86.3 kg

DRUGS (11)
  1. PROCRIT [Suspect]
     Indication: ANAEMIA
     Route: 042
     Dates: start: 20080606
  2. LEVOXYL [Concomitant]
     Route: 048
  3. HYDROCHLOROTHIAZIDE [Concomitant]
     Route: 048
  4. LISINOPRIL [Concomitant]
     Route: 048
  5. PINDOLOL [Concomitant]
     Route: 048
  6. TERAZOSIN HCL [Concomitant]
  7. CARDIZEM [Concomitant]
  8. ROZEREM [Concomitant]
  9. PROSCAR [Concomitant]
  10. DETROL [Concomitant]
  11. FOLIC ACID [Concomitant]

REACTIONS (11)
  - ASTHENIA [None]
  - BLOOD CHOLESTEROL INCREASED [None]
  - BLOOD PRESSURE INCREASED [None]
  - DIZZINESS [None]
  - GAIT DISTURBANCE [None]
  - GOUT [None]
  - HAEMOGLOBIN DECREASED [None]
  - HAEMORRHAGE [None]
  - LIVEDO RETICULARIS [None]
  - PITTING OEDEMA [None]
  - TRANSIENT ISCHAEMIC ATTACK [None]
